FAERS Safety Report 5614176-1 (Version None)
Quarter: 2008Q1

REPORT INFORMATION
  Report Type: 
  Country: None (occurrence: None)
  Receive Date: 20080205
  Receipt Date: 20080131
  Transmission Date: 20080703
  Serious: Yes (Hospitalization)
  Sender: FDA-Public Use
  Company Number: B0504963A

PATIENT
  Age: 41 Year
  Sex: Male

DRUGS (8)
  1. PAXIL [Suspect]
     Indication: DRUG USE FOR UNKNOWN INDICATION
     Dosage: 20MG PER DAY
     Route: 048
     Dates: end: 20080122
  2. CEROCRAL [Concomitant]
     Route: 048
  3. AMOBAN [Concomitant]
     Route: 048
  4. DEPAKENE [Concomitant]
     Route: 048
  5. LEXOTAN [Concomitant]
     Route: 048
  6. AKINETON [Concomitant]
  7. RISPERDAL [Concomitant]
     Route: 048
  8. DEPAS [Concomitant]
     Route: 048

REACTIONS (1)
  - INTRACRANIAL VENOUS SINUS THROMBOSIS [None]
